FAERS Safety Report 5851373-4 (Version None)
Quarter: 2008Q3

REPORT INFORMATION
  Report Type: 
  Country: None (occurrence: None)
  Receive Date: 20080731
  Receipt Date: 20080611
  Transmission Date: 20090109
  Serious: No
  Sender: FDA-Public Use
  Company Number: US200804003907

PATIENT
  Age: 69 Year
  Sex: Male
  Weight: 93 kg

DRUGS (6)
  1. BYETTA [Suspect]
     Indication: TYPE 2 DIABETES MELLITUS
     Dosage: 5 UG 2/D SUBCUTANEOUS; 10 UG 2/D SUBCUTANEOUS; 5 UG 2/D SUBCUTANEOUS
     Route: 058
     Dates: start: 20071101, end: 20071201
  2. BYETTA [Suspect]
     Indication: TYPE 2 DIABETES MELLITUS
     Dosage: 5 UG 2/D SUBCUTANEOUS; 10 UG 2/D SUBCUTANEOUS; 5 UG 2/D SUBCUTANEOUS
     Route: 058
     Dates: start: 20071201, end: 20071201
  3. BYETTA [Suspect]
     Indication: TYPE 2 DIABETES MELLITUS
     Dosage: 5 UG 2/D SUBCUTANEOUS; 10 UG 2/D SUBCUTANEOUS; 5 UG 2/D SUBCUTANEOUS
     Route: 058
     Dates: start: 20080101
  4. EXENATIDE 5MCG PEN, DISPOSABLE DEVICE (EXENATIDE PEN (5 MCG)) PEN, DIS [Concomitant]
  5. GLIMEPIRIDE [Concomitant]
  6. METFORMIN HCL [Concomitant]

REACTIONS (5)
  - ERUCTATION [None]
  - NAUSEA [None]
  - PROSTATIC SPECIFIC ANTIGEN INCREASED [None]
  - TREMOR [None]
  - WEIGHT DECREASED [None]
